FAERS Safety Report 9040529 (Version 1)
Quarter: 2013Q1

REPORT INFORMATION
  Report Type: Report from Study
  Country: US (occurrence: US)
  Receive Date: 20130129
  Receipt Date: 20130129
  Transmission Date: 20140127
  Serious: No
  Sender: FDA-Public Use
  Company Number: US-ABBOTT-12P-163-0890022-00

PATIENT
  Age: 32 None
  Sex: Female
  Weight: 104.42 kg

DRUGS (3)
  1. HUMIRA 40 MG/0.8 ML PEN [Suspect]
     Indication: UVEITIS
     Dates: start: 2008, end: 201004
  2. HUMIRA 40 MG/0.8 ML PEN [Suspect]
     Indication: SCLERITIS
  3. ANALGESIA [Suspect]
     Indication: LABOUR PAIN
     Route: 008
     Dates: start: 2010, end: 2010

REACTIONS (7)
  - Dyspnoea [Recovering/Resolving]
  - Uveitis [Recovering/Resolving]
  - Gestational diabetes [Recovered/Resolved]
  - Hypertension [Recovered/Resolved]
  - Nausea [Recovered/Resolved]
  - Presyncope [Recovered/Resolved]
  - Hypotension [Recovered/Resolved]
